FAERS Safety Report 9329036 (Version 1)
Quarter: 2013Q2

REPORT INFORMATION
  Report Type: Spontaneous
  Country: US (occurrence: US)
  Receive Date: 20130604
  Receipt Date: 20130604
  Transmission Date: 20140414
  Serious: No
  Sender: FDA-Public Use
  Company Number: US-SANOFI-AVENTIS-2012SA072080

PATIENT
  Age: 74 Year
  Sex: Female

DRUGS (6)
  1. LANTUS SOLOSTAR [Suspect]
     Indication: TYPE 2 DIABETES MELLITUS
     Dosage: DOSE:20 UNIT(S)
     Route: 058
     Dates: start: 201102
  2. LANTUS SOLOSTAR [Suspect]
     Indication: TYPE 2 DIABETES MELLITUS
     Dosage: DOSE:15 UNIT(S)
     Route: 058
  3. SOLOSTAR [Suspect]
     Indication: TYPE 2 DIABETES MELLITUS
     Dates: start: 201102
  4. GLYNASE [Suspect]
     Dosage: DOSE:6 UNIT(S)
     Route: 065
  5. GLUCOPHAGE [Suspect]
     Dosage: DOSE:2000 UNIT(S)
     Route: 065
  6. CORTICOSTEROIDS [Suspect]
     Indication: RASH
     Route: 065

REACTIONS (2)
  - Rash [Unknown]
  - Blood glucose increased [Unknown]
